FAERS Safety Report 4371941-9 (Version None)
Quarter: 2004Q2

REPORT INFORMATION
  Report Type: 
  Country: None (occurrence: None)
  Receive Date: 20040602
  Receipt Date: 20040518
  Transmission Date: 20050107
  Serious: Yes (Death)
  Sender: FDA-Public Use
  Company Number: US-JNJFOC-20040206179

PATIENT
  Age: 35 Year
  Sex: Female
  Weight: 96.1626 kg

DRUGS (12)
  1. DURAGESIC [Suspect]
     Indication: CANCER PAIN
     Dosage: SEE IMAGE
     Route: 062
     Dates: start: 20030912, end: 20031107
  2. DURAGESIC [Suspect]
     Indication: CANCER PAIN
     Dosage: SEE IMAGE
     Route: 062
     Dates: start: 20031107, end: 20040131
  3. DILAUDID [Concomitant]
  4. PHENERGAN [Concomitant]
  5. ZOFRAN [Concomitant]
  6. ATIVAN [Concomitant]
  7. HALDOL [Concomitant]
  8. DILAUDID [Concomitant]
  9. DEMEROL [Concomitant]
  10. LOVENOX [Concomitant]
  11. COMBIVENT [Concomitant]
  12. OXYGEN (OXYGEN) [Concomitant]

REACTIONS (19)
  - ABDOMINAL PAIN [None]
  - ARTHRALGIA [None]
  - BLOOD ALKALINE PHOSPHATASE INCREASED [None]
  - BONE PAIN [None]
  - CARCINOEMBRYONIC ANTIGEN INCREASED [None]
  - COLORECTAL CANCER METASTATIC [None]
  - CONFUSIONAL STATE [None]
  - DEPRESSED LEVEL OF CONSCIOUSNESS [None]
  - DRUG EFFECT DECREASED [None]
  - DYSPNOEA [None]
  - GENERAL PHYSICAL HEALTH DETERIORATION [None]
  - MALIGNANT NEOPLASM PROGRESSION [None]
  - METASTASES TO ABDOMINAL CAVITY [None]
  - METASTASES TO BONE [None]
  - METASTASES TO LYMPH NODES [None]
  - NAUSEA [None]
  - PYREXIA [None]
  - RESPIRATORY DEPRESSION [None]
  - VOMITING [None]
